FAERS Safety Report 12624467 (Version 3)
Quarter: 2016Q4

REPORT INFORMATION
  Report Type: Report from Study
  Country: JP (occurrence: JP)
  Receive Date: 20160805
  Receipt Date: 20161023
  Transmission Date: 20170207
  Serious: Yes (Other)
  Sender: FDA-Public Use
  Company Number: JP-UCBSA-2016028534

PATIENT
  Sex: Female
  Weight: 59 kg

DRUGS (2)
  1. SOLETON [Concomitant]
     Active Substance: ZALTOPROFEN
     Indication: RHEUMATOID ARTHRITIS
     Dosage: 240 MG, ONCE DAILY (QD)
     Route: 048
  2. CERTOLIZUMAB PEGOL RA [Suspect]
     Active Substance: CERTOLIZUMAB PEGOL
     Indication: RHEUMATOID ARTHRITIS
     Dosage: 400 MG, EV 4 WEEKS
     Route: 058
     Dates: start: 20150611

REACTIONS (1)
  - Anaphylactic reaction [Recovering/Resolving]
